FAERS Safety Report 25711434 (Version 1)
Quarter: 2025Q3

REPORT INFORMATION
  Report Type: Spontaneous
  Country: US (occurrence: None)
  Receive Date: 20250821
  Receipt Date: 20250821
  Transmission Date: 20251021
  Serious: Yes (Hospitalization)
  Sender: FDA-CTU
  Company Number: None

PATIENT
  Sex: Female

DRUGS (2)
  1. AFINITOR [Suspect]
     Active Substance: EVEROLIMUS
     Indication: Product used for unknown indication
     Dosage: 20 MG DAILY ORAL ?
     Route: 048
     Dates: start: 20250321
  2. EVEROLIMUS [Suspect]
     Active Substance: EVEROLIMUS

REACTIONS (4)
  - Diabetic ketoacidosis [None]
  - Sepsis [None]
  - Wound infection [None]
  - Bone lesion [None]
